FAERS Safety Report 5594908-1 (Version None)
Quarter: 2007Q4

REPORT INFORMATION
  Report Type: 
  Country: None (occurrence: None)
  Receive Date: 20071218
  Receipt Date: 20070418
  Transmission Date: 20080405
  Serious: Yes (Other)
  Sender: FDA-Public Use
  Company Number: 2007030815

PATIENT
  Sex: Male

DRUGS (2)
  1. BEXTRA [Suspect]
     Indication: BACK PAIN
     Dosage: 20 MG (10 MG,2 IN 1 D)
     Dates: start: 20040504
  2. BEXTRA [Suspect]
     Indication: STOMACH DISCOMFORT
     Dosage: 20 MG (10 MG,2 IN 1 D)
     Dates: start: 20040504

REACTIONS (1)
  - MYOCARDIAL INFARCTION [None]
